FAERS Safety Report 6065769-1 (Version None)
Quarter: 2009Q1

REPORT INFORMATION
  Report Type: 
  Country: None (occurrence: None)
  Receive Date: 20090130
  Receipt Date: 20090128
  Transmission Date: 20090719
  Serious: Yes (Hospitalization, Disabling)
  Sender: FDA-Public Use
  Company Number: 2009SP026064

PATIENT
  Age: 60 Year
  Sex: Female
  Weight: 58 kg

DRUGS (4)
  1. PEG-INTRON         (PEGINTERFER ALFA-2B) [Suspect]
     Indication: HEPATITIS C
     Dosage: 80 MCG; QW; SC, 60 MCG; QW; SC
     Route: 058
     Dates: start: 20080522, end: 20080612
  2. PEG-INTRON         (PEGINTERFER ALFA-2B) [Suspect]
     Indication: HEPATITIS C
     Dosage: 80 MCG; QW; SC, 60 MCG; QW; SC
     Route: 058
     Dates: start: 20080619, end: 20081113
  3. REBETOL [Suspect]
     Indication: HEPATITIS C
     Dosage: 600 MG; QD; PO
     Route: 048
     Dates: start: 20080522, end: 20081119
  4. MYSLEE [Concomitant]

REACTIONS (5)
  - DEHYDRATION [None]
  - DIABETIC KETOACIDOSIS [None]
  - GLYCOSYLATED HAEMOGLOBIN INCREASED [None]
  - TYPE 1 DIABETES MELLITUS [None]
  - WEIGHT DECREASED [None]
